FAERS Safety Report 24561116 (Version 1)
Quarter: 2024Q4

REPORT INFORMATION
  Report Type: Spontaneous
  Country: FR (occurrence: FR)
  Receive Date: 20241029
  Receipt Date: 20241029
  Transmission Date: 20250114
  Serious: Yes (Other)
  Sender: TEVA
  Company Number: None

PATIENT
  Age: 54 Year
  Sex: Female

DRUGS (1)
  1. PIROXICAM [Suspect]
     Active Substance: PIROXICAM
     Indication: Intervertebral disc disorder
     Dosage: TIME INTERVAL: TOTAL
     Route: 048
     Dates: start: 20240817

REACTIONS (1)
  - Rash pruritic [Recovering/Resolving]

NARRATIVE: CASE EVENT DATE: 20240817
